FAERS Safety Report 6251012-7 (Version None)
Quarter: 2009Q2

REPORT INFORMATION
  Report Type: 
  Country: None (occurrence: None)
  Receive Date: 20090626
  Receipt Date: 20090610
  Transmission Date: 20091009
  Serious: Yes (Other)
  Sender: FDA-Public Use
  Company Number: GB-DEXPHARM-20090852

PATIENT

DRUGS (2)
  1. DICLOFENAC SODIUM [Suspect]
     Indication: PAIN
  2. XARELTO [Suspect]
     Indication: KNEE ARTHROPLASTY

REACTIONS (3)
  - HAEMARTHROSIS [None]
  - JOINT SWELLING [None]
  - POSTOPERATIVE WOUND COMPLICATION [None]
